FAERS Safety Report 19190388 (Version 5)
Quarter: 2021Q3

REPORT INFORMATION
  Report Type: Report from Study
  Country: US (occurrence: US)
  Receive Date: 20210428
  Receipt Date: 20210705
  Transmission Date: 20211014
  Serious: Yes (Other)
  Sender: FDA-Public Use
  Company Number: NVSC2021US095887

PATIENT
  Sex: Male

DRUGS (1)
  1. ENTRESTO [Suspect]
     Active Substance: SACUBITRIL\VALSARTAN
     Indication: CARDIAC FAILURE
     Dosage: 50 MG, BID (24/26 MG)
     Route: 048

REACTIONS (6)
  - Atrial fibrillation [Unknown]
  - Heart rate irregular [Unknown]
  - Weight decreased [Unknown]
  - Blood pressure decreased [Unknown]
  - Intracardiac thrombus [Unknown]
  - Dizziness [Not Recovered/Not Resolved]
